FAERS Safety Report 18714962 (Version 3)
Quarter: 2021Q1

REPORT INFORMATION
  Report Type: Report from Study
  Country: JP (occurrence: JP)
  Receive Date: 20210107
  Receipt Date: 20210308
  Transmission Date: 20210419
  Serious: Yes (Hospitalization)
  Sender: FDA-Public Use
  Company Number: JP-CELLTRION INC.-2021JP000063

PATIENT

DRUGS (18)
  1. XELODA [Suspect]
     Active Substance: CAPECITABINE
     Dosage: 1800 MG, QD
     Route: 048
     Dates: start: 20210104
  2. ELPLAT [Suspect]
     Active Substance: OXALIPLATIN
     Dosage: 233 MG, QD
     Route: 041
     Dates: start: 20201214
  3. ELPLAT [Suspect]
     Active Substance: OXALIPLATIN
     Dosage: 233 MG, QD
     Route: 041
     Dates: start: 20210104
  4. TRASTUZUMAB BS FOR I.V. INFUSION [NK] [Suspect]
     Active Substance: TRASTUZUMAB
     Dosage: 384 MG, QD
     Route: 041
     Dates: start: 20201120
  5. TRASTUZUMAB BS FOR I.V. INFUSION [NK] [Suspect]
     Active Substance: TRASTUZUMAB
     Dosage: 384 MG, QD
     Route: 041
     Dates: start: 20201214
  6. ELPLAT [Suspect]
     Active Substance: OXALIPLATIN
     Dosage: 233 MG, QD
     Route: 041
     Dates: start: 20201120
  7. TRASTUZUMAB BS FOR I.V. INFUSION [NK] [Suspect]
     Active Substance: TRASTUZUMAB
     Indication: GASTRIC CANCER
     Dosage: 384 MG, QD
     Route: 041
     Dates: start: 20201026
  8. TRASTUZUMAB BS FOR I.V. INFUSION [NK] [Suspect]
     Active Substance: TRASTUZUMAB
     Dosage: 384 MG, QD
     Route: 041
     Dates: start: 20210208
  9. XELODA [Suspect]
     Active Substance: CAPECITABINE
     Dosage: 1800 MG, QD
     Route: 048
     Dates: start: 20201214
  10. XELODA [Suspect]
     Active Substance: CAPECITABINE
     Dosage: 1800 MG, QD
     Route: 048
     Dates: start: 20210118
  11. XELODA [Suspect]
     Active Substance: CAPECITABINE
     Dosage: 1800 MG, QD
     Route: 048
     Dates: start: 20201120
  12. XELODA [Suspect]
     Active Substance: CAPECITABINE
     Dosage: 3600 MG, QD
     Route: 048
     Dates: start: 20210208
  13. ELPLAT [Suspect]
     Active Substance: OXALIPLATIN
     Dosage: 233 MG, QD
     Route: 041
     Dates: start: 20210118
  14. TRASTUZUMAB BS FOR I.V. INFUSION [NK] [Suspect]
     Active Substance: TRASTUZUMAB
     Dosage: 384 MG, QD
     Route: 041
     Dates: start: 20210118
  15. XELODA [Suspect]
     Active Substance: CAPECITABINE
     Indication: GASTRIC CANCER
     Dosage: 1800 MG, QD
     Route: 048
     Dates: start: 20201026
  16. ELPLAT [Suspect]
     Active Substance: OXALIPLATIN
     Indication: GASTRIC CANCER
     Dosage: 233 MG, QD
     Route: 041
     Dates: start: 20201026
  17. ELPLAT [Suspect]
     Active Substance: OXALIPLATIN
     Dosage: 233 MG, QD
     Route: 041
     Dates: start: 20210208
  18. TRASTUZUMAB BS FOR I.V. INFUSION [NK] [Suspect]
     Active Substance: TRASTUZUMAB
     Dosage: 384 MG, QD
     Route: 041
     Dates: start: 20210104

REACTIONS (3)
  - Underdose [Unknown]
  - Off label use [Unknown]
  - Decreased appetite [Not Recovered/Not Resolved]

NARRATIVE: CASE EVENT DATE: 20210104
